FAERS Safety Report 14971844 (Version 2)
Quarter: 2018Q2

REPORT INFORMATION
  Report Type: Report from Study
  Country: None (occurrence: US)
  Receive Date: 20180605
  Receipt Date: 20180626
  Transmission Date: 20180711
  Serious: Yes (Other)
  Sender: FDA-Public Use
  Company Number: US-ABBVIE-18K-163-2373365-00

PATIENT
  Age: 32 Year
  Sex: Female
  Weight: 88.53 kg

DRUGS (1)
  1. HUMIRA [Suspect]
     Active Substance: ADALIMUMAB
     Indication: HIDRADENITIS
     Route: 058
     Dates: start: 200801, end: 20180527

REACTIONS (18)
  - Fatigue [Recovering/Resolving]
  - Palpitations [Recovered/Resolved]
  - Blood urine present [Not Recovered/Not Resolved]
  - Cholecystectomy [Recovering/Resolving]
  - Ovarian cyst ruptured [Recovered/Resolved]
  - Post procedural complication [Not Recovered/Not Resolved]
  - Blood potassium decreased [Recovering/Resolving]
  - Ovarian cyst [Recovering/Resolving]
  - Catheter site thrombosis [Recovering/Resolving]
  - Nausea [Recovered/Resolved]
  - Diarrhoea [Recovered/Resolved]
  - Muscle strain [Unknown]
  - Back pain [Recovered/Resolved]
  - Hidradenitis [Not Recovered/Not Resolved]
  - Post procedural fever [Not Recovered/Not Resolved]
  - White blood cell count increased [Recovering/Resolving]
  - Procedural pain [Unknown]
  - Hypertension [Recovered/Resolved]

NARRATIVE: CASE EVENT DATE: 2018
